FAERS Safety Report 5841159-9 (Version None)
Quarter: 2008Q3

REPORT INFORMATION
  Report Type: 
  Country: None (occurrence: None)
  Receive Date: 20080807
  Receipt Date: 20080807
  Transmission Date: 20090109
  Serious: Yes (Other)
  Sender: FDA-Public Use
  Company Number: None

PATIENT
  Age: 44 Year
  Sex: Female
  Weight: 87.5442 kg

DRUGS (2)
  1. VENLAFAXINE HCL [Suspect]
     Indication: STRESS
     Dosage: ONE CAPSULE DAILY PO
     Route: 048
     Dates: start: 20050301, end: 20080705
  2. VENLAFAXINE HCL [Suspect]
     Indication: THERAPY CESSATION
     Dosage: ONE CAPSULE FOR WEANING PO
     Route: 048
     Dates: start: 20080701, end: 20080712

REACTIONS (14)
  - ANGER [None]
  - ARTHRALGIA [None]
  - CEREBRAL DISORDER [None]
  - DIARRHOEA [None]
  - DIZZINESS [None]
  - DRUG DEPENDENCE [None]
  - DRUG WITHDRAWAL SYNDROME [None]
  - FATIGUE [None]
  - FLATULENCE [None]
  - GASTROINTESTINAL DISORDER [None]
  - IRRITABILITY [None]
  - MOOD SWINGS [None]
  - SUICIDAL IDEATION [None]
  - TINNITUS [None]
